FAERS Safety Report 20081928 (Version 1)
Quarter: 2021Q4

REPORT INFORMATION
  Report Type: Spontaneous
  Country: GR (occurrence: GR)
  Receive Date: 20211117
  Receipt Date: 20211117
  Transmission Date: 20220303
  Serious: No
  Sender: FDA-Public Use
  Company Number: GR-PFIZER INC-202101053801

PATIENT
  Age: 11 Year
  Sex: Male
  Weight: 30 kg

DRUGS (2)
  1. GENOTROPIN [Suspect]
     Active Substance: SOMATROPIN
     Indication: Growth hormone deficiency
     Dosage: 12 MG, WEEKLY
     Route: 058
     Dates: start: 202011
  2. GENOTROPIN [Suspect]
     Active Substance: SOMATROPIN
     Dosage: UNK

REACTIONS (2)
  - Drug dose omission by device [Unknown]
  - Device use error [Unknown]
